FAERS Safety Report 16427796 (Version 2)
Quarter: 2019Q4

REPORT INFORMATION
  Report Type: Spontaneous
  Country: FR (occurrence: FR)
  Receive Date: 20190613
  Receipt Date: 20191225
  Transmission Date: 20200122
  Serious: Yes (Hospitalization)
  Sender: FDA-Public Use
  Company Number: FR-TEVA-2019-FR-1061876

PATIENT
  Age: 51 Year
  Sex: Male
  Weight: 89 kg

DRUGS (8)
  1. CASPOFUNGINE FRESENIUS KABI [Suspect]
     Active Substance: CASPOFUNGIN ACETATE
     Indication: INFECTION
     Route: 041
     Dates: start: 20190323, end: 20190414
  2. FUROSEMIDE ARROW [Suspect]
     Active Substance: FUROSEMIDE
     Route: 048
     Dates: start: 20190414, end: 20190505
  3. EFIENT [Suspect]
     Active Substance: PRASUGREL HYDROCHLORIDE
     Route: 048
     Dates: start: 20190328, end: 20190416
  4. ATORVASTATINE [Suspect]
     Active Substance: ATORVASTATIN
     Indication: HYPOCHOLESTEROLAEMIA
     Route: 048
     Dates: start: 20190328, end: 20190418
  5. WELLVONE [Suspect]
     Active Substance: ATOVAQUONE
     Indication: INFECTION PROPHYLAXIS
     Route: 048
     Dates: start: 20190320, end: 20190422
  6. LANSOPRAZOLE MYLAN [Suspect]
     Active Substance: LANSOPRAZOLE
     Indication: PROPHYLAXIS AGAINST GASTROINTESTINAL ULCER
     Route: 048
     Dates: start: 20190402, end: 20190408
  7. RAMIPRIL MYLAN [Suspect]
     Active Substance: RAMIPRIL
     Indication: HYPERTENSION
     Route: 048
  8. PANTOPRAZOLE SODIUM. [Suspect]
     Active Substance: PANTOPRAZOLE SODIUM
     Indication: PROPHYLAXIS AGAINST GASTROINTESTINAL ULCER
     Route: 041
     Dates: start: 20190415, end: 20190423

REACTIONS (2)
  - Rash [Recovering/Resolving]
  - Pyrexia [Recovered/Resolved]

NARRATIVE: CASE EVENT DATE: 20190418
